FAERS Safety Report 25546711 (Version 1)
Quarter: 2025Q3

REPORT INFORMATION
  Report Type: Spontaneous
  Country: US (occurrence: US)
  Receive Date: 20250714
  Receipt Date: 20250714
  Transmission Date: 20251020
  Serious: Yes (Other)
  Sender: ALEXION PHARMACEUTICALS
  Company Number: US-AstraZeneca-CH-00905590A

PATIENT
  Sex: Male

DRUGS (2)
  1. TEZSPIRE [Suspect]
     Active Substance: TEZEPELUMAB-EKKO
     Route: 065
  2. TEZSPIRE [Suspect]
     Active Substance: TEZEPELUMAB-EKKO

REACTIONS (8)
  - Immunodeficiency [Unknown]
  - Hallucination [Unknown]
  - Dyspnoea [Unknown]
  - Corneal warpage [Unknown]
  - Giardiasis [Unknown]
  - Muscle atrophy [Unknown]
  - Tooth loss [Unknown]
  - Alopecia [Unknown]
